FAERS Safety Report 21984929 (Version 2)
Quarter: 2023Q1

REPORT INFORMATION
  Report Type: Report from Study
  Country: FR (occurrence: FR)
  Receive Date: 20230213
  Receipt Date: 20230306
  Transmission Date: 20230418
  Serious: Yes (Other)
  Sender: FDA-Public Use
  Company Number: FR-PFIZER INC-PV202300023461

PATIENT
  Age: 40 Year
  Sex: Female
  Weight: 94 kg

DRUGS (3)
  1. PALBOCICLIB [Suspect]
     Active Substance: PALBOCICLIB
     Indication: Breast cancer
     Dosage: 125 MG, CYCLIC
     Route: 048
     Dates: start: 20210831, end: 20220103
  2. LETROZOLE [Concomitant]
     Active Substance: LETROZOLE
     Indication: Breast cancer
     Dosage: 2.5 MG, CYCLIC
     Route: 048
     Dates: start: 20210831
  3. TRIPTORELIN [Concomitant]
     Active Substance: TRIPTORELIN
     Indication: Breast cancer
     Dosage: 3 MG, MONTHLY
     Route: 030
     Dates: start: 20210913

REACTIONS (1)
  - Hepatotoxicity [Recovered/Resolved]

NARRATIVE: CASE EVENT DATE: 20211206
